APPROVED DRUG PRODUCT: ORACEA
Active Ingredient: DOXYCYCLINE
Strength: 40MG
Dosage Form/Route: CAPSULE;ORAL
Application: N050805 | Product #001 | TE Code: AB
Applicant: GALDERMA LABORATORIES LP
Approved: May 26, 2006 | RLD: Yes | RS: Yes | Type: RX

PATENTS:
Patent 7749532 | Expires: Dec 19, 2027